FAERS Safety Report 10754959 (Version 1)
Quarter: 2015Q1

REPORT INFORMATION
  Report Type: Spontaneous
  Country: US (occurrence: None)
  Receive Date: 20150130
  Receipt Date: 20150130
  Transmission Date: 20150721
  Serious: Yes (Disabling)
  Sender: FDA-Public Use
  Company Number: None

PATIENT
  Age: 35 Year
  Sex: Female
  Weight: 71.22 kg

DRUGS (1)
  1. CYMBALTA [Suspect]
     Active Substance: DULOXETINE HYDROCHLORIDE
     Indication: MAJOR DEPRESSION
     Dosage: SEVERAL YEARS, 120 MG (2 PILLS OF 60MG EACH), ONCE DAILY, TAKEN BY MOUTH
     Route: 048

REACTIONS (14)
  - Thirst [None]
  - Insomnia [None]
  - Somnolence [None]
  - Impaired work ability [None]
  - Diarrhoea [None]
  - Impaired driving ability [None]
  - Drug withdrawal syndrome [None]
  - Night sweats [None]
  - Nightmare [None]
  - Headache [None]
  - Dizziness [None]
  - Toxicity to various agents [None]
  - Nausea [None]
  - Muscle spasms [None]

NARRATIVE: CASE EVENT DATE: 20150124
